FAERS Safety Report 8962804 (Version 1)
Quarter: 2012Q4

REPORT INFORMATION
  Report Type: Spontaneous
  Country: JP (occurrence: None)
  Receive Date: 20121205
  Receipt Date: 20121205
  Transmission Date: 20130627
  Serious: Yes (Other)
  Sender: FDA-Public Use
  Company Number: JP-20120064

PATIENT
  Sex: Male

DRUGS (3)
  1. LIPIODOL ULTRA FLUIDE (ETHIODIZED OIL) [Suspect]
     Indication: ARTERIAL INFUSION CHEMOTHERAPY
     Route: 013
  2. CISPLATIN [Suspect]
     Indication: ARTERIAL INFUSION CHEMOTHERAPY
     Route: 013
  3. 5-FU [Suspect]
     Indication: ARTERIAL INFUSION CHEMOTHERAPY
     Route: 013

REACTIONS (2)
  - Cerebral infarction [None]
  - Off label use [None]
